FAERS Safety Report 6319231-9 (Version None)
Quarter: 2009Q3

REPORT INFORMATION
  Report Type: 
  Country: None (occurrence: None)
  Receive Date: 20090821
  Receipt Date: 20080814
  Transmission Date: 20100115
  Serious: No
  Sender: FDA-Public Use
  Company Number: US-ABBOTT-08P-163-0470734-00

PATIENT
  Sex: Male

DRUGS (3)
  1. NIASPAN [Suspect]
     Indication: DRUG USE FOR UNKNOWN INDICATION
     Route: 048
  2. NIASPAN [Suspect]
     Dosage: UNCOATED
     Route: 048
  3. NIASPAN [Suspect]
     Dosage: 500 MG , 4 IN 1 D, UNCOATED
     Route: 048

REACTIONS (1)
  - HAEMORRHAGE [None]
